FAERS Safety Report 4299488-9 (Version None)
Quarter: 2004Q1

REPORT INFORMATION
  Report Type: 
  Country: None (occurrence: None)
  Receive Date: 20040219
  Receipt Date: 20040213
  Transmission Date: 20041129
  Serious: Yes (Death)
  Sender: FDA-Public Use
  Company Number: FR-GLAXOSMITHKLINE-B0323327A

PATIENT
  Age: 52 Year
  Sex: Male

DRUGS (1)
  1. CLAMOXYL [Suspect]
     Dosage: 3G PER DAY
     Route: 048
     Dates: start: 20040128, end: 20040128

REACTIONS (6)
  - ANOXIA [None]
  - BRAIN DEATH [None]
  - BRONCHOSPASM [None]
  - CARDIO-RESPIRATORY ARREST [None]
  - LARYNGEAL OEDEMA [None]
  - SHOCK [None]
